FAERS Safety Report 21981053 (Version 1)
Quarter: 2023Q1

REPORT INFORMATION
  Report Type: Report from Study
  Country: CA (occurrence: CA)
  Receive Date: 20230211
  Receipt Date: 20230211
  Transmission Date: 20230418
  Serious: Yes (Other)
  Sender: FDA-Public Use
  Company Number: CA-ABBVIE-4275668

PATIENT
  Age: 94 Year
  Sex: Male

DRUGS (4)
  1. LUPRON DEPOT [Suspect]
     Active Substance: LEUPROLIDE ACETATE
     Indication: Prostate cancer
     Dosage: EVENT ONSET DATE -2022
     Route: 030
     Dates: start: 20220602
  2. LUPRON DEPOT [Suspect]
     Active Substance: LEUPROLIDE ACETATE
     Route: 030
  3. LUPRON DEPOT [Suspect]
     Active Substance: LEUPROLIDE ACETATE
     Route: 030
  4. CASODEX [Concomitant]
     Active Substance: BICALUTAMIDE
     Indication: Prostate cancer
     Route: 048

REACTIONS (4)
  - Palliative care [Not Recovered/Not Resolved]
  - Drug ineffective [Unknown]
  - Malaise [Not Recovered/Not Resolved]
  - Prostatic specific antigen increased [Unknown]

NARRATIVE: CASE EVENT DATE: 20230101
